FAERS Safety Report 7906404-4 (Version None)
Quarter: 2011Q4

REPORT INFORMATION
  Report Type: 
  Country: None (occurrence: None)
  Receive Date: 20111110
  Receipt Date: 20111104
  Transmission Date: 20120403
  Serious: Yes (Other)
  Sender: FDA-Public Use
  Company Number: US-PFIZER INC-2011272884

PATIENT
  Sex: Female

DRUGS (1)
  1. CORDARONE [Suspect]
     Dosage: UNK

REACTIONS (6)
  - NEUROLOGICAL SYMPTOM [None]
  - ECZEMA [None]
  - PARKINSONISM [None]
  - HYPERTHYROIDISM [None]
  - ERYTHEMA [None]
  - ALOPECIA [None]
